FAERS Safety Report 25223871 (Version 1)
Quarter: 2025Q2

REPORT INFORMATION
  Report Type: Spontaneous
  Country: US (occurrence: US)
  Receive Date: 20250422
  Receipt Date: 20250422
  Transmission Date: 20250716
  Serious: Yes (Other)
  Sender: AMGEN
  Company Number: US-AMGEN-USASP2025074176

PATIENT

DRUGS (1)
  1. BLINATUMOMAB [Suspect]
     Active Substance: BLINATUMOMAB
     Indication: B-cell type acute leukaemia
     Route: 065

REACTIONS (8)
  - B-cell type acute leukaemia [Unknown]
  - Neuropathy peripheral [Unknown]
  - Encephalitis bacterial [Unknown]
  - Streptococcal bacteraemia [Unknown]
  - Escherichia bacteraemia [Unknown]
  - Staphylococcal bacteraemia [Unknown]
  - Therapeutic product effect incomplete [Unknown]
  - Paraesthesia [Unknown]
